FAERS Safety Report 7800117-5 (Version None)
Quarter: 2011Q4

REPORT INFORMATION
  Report Type: 
  Country: None (occurrence: None)
  Receive Date: 20111004
  Receipt Date: 20110920
  Transmission Date: 20120403
  Serious: Yes (Hospitalization)
  Sender: FDA-Public Use
  Company Number: 2011SP044596

PATIENT
  Age: 82 Year
  Sex: Female
  Weight: 70 kg

DRUGS (10)
  1. TEMOZOLOMIDE [Suspect]
     Indication: GLIOBLASTOMA
     Dosage: 235 MG, QD, PO
     Route: 048
     Dates: start: 20110819, end: 20110905
  2. PLAVIX [Concomitant]
  3. DUPHALAC [Concomitant]
  4. CRESTOR [Concomitant]
  5. AMLODIPINE BESYLATE [Concomitant]
  6. IMOVANE [Concomitant]
  7. BEVACIZUMAB (BEVACIZUMAB) [Suspect]
     Indication: GLIOBLASTOMA
     Dosage: 10 MG/KG
     Dates: start: 20110901, end: 20110901
  8. EDUCTYL [Concomitant]
  9. POTASSIUM CHLORIDE [Concomitant]
  10. DEBRIDAT [Concomitant]

REACTIONS (1)
  - CONSTIPATION [None]
